FAERS Safety Report 8297521-0 (Version None)
Quarter: 2012Q2

REPORT INFORMATION
  Report Type: 
  Country: None (occurrence: None)
  Receive Date: 20120419
  Receipt Date: 20120412
  Transmission Date: 20120825
  Serious: Yes (Other)
  Sender: FDA-Public Use
  Company Number: PHEH2012US007665

PATIENT
  Sex: Male

DRUGS (1)
  1. RECLAST [Suspect]
     Indication: OSTEOPOROSIS
     Dosage: UNK
     Route: 042
     Dates: start: 20110510

REACTIONS (4)
  - WRIST FRACTURE [None]
  - FALL [None]
  - DIZZINESS [None]
  - LOSS OF CONSCIOUSNESS [None]
